FAERS Safety Report 18696275 (Version 5)
Quarter: 2021Q1

REPORT INFORMATION
  Report Type: Report from Study
  Country: DK (occurrence: DK)
  Receive Date: 20210104
  Receipt Date: 20210218
  Transmission Date: 20210419
  Serious: Yes (Other)
  Sender: FDA-Public Use
  Company Number: DK-GLAXOSMITHKLINE-DK2020GSK180495

PATIENT
  Age: 70 Year
  Sex: Female
  Weight: 62 kg

DRUGS (18)
  1. DARBEPOETIN ALFA [Concomitant]
     Active Substance: DARBEPOETIN ALFA
     Dosage: 500 UG, EVERY THURSDAY 4 WEEKS
     Dates: start: 20200820
  2. ACETIL [Concomitant]
     Dosage: 75 MG, 1 TABLET
     Dates: start: 20200110
  3. DENOSUMAB [Concomitant]
     Active Substance: DENOSUMAB
     Indication: OSTEOPOROSIS
     Dosage: 120 MG, EVERY THURSDAY 4 WEEKS
     Dates: start: 20190926
  4. DICLOFENAC [Concomitant]
     Active Substance: DICLOFENAC
     Dosage: 100 MG, 1 TABLET
     Dates: start: 20200701
  5. BELANTAMAB MAFODOTIN. [Suspect]
     Active Substance: BELANTAMAB MAFODOTIN
     Indication: PLASMA CELL MYELOMA
     Dosage: 163 MG (3 WEEKS)
     Route: 042
     Dates: start: 20200901
  6. BELANTAMAB MAFODOTIN. [Suspect]
     Active Substance: BELANTAMAB MAFODOTIN
     Dosage: 82 MG, CYC
     Route: 042
     Dates: start: 20201103
  7. ALLOPURINOL. [Concomitant]
     Active Substance: ALLOPURINOL
     Dosage: 100 MG, 1 TABLET
     Dates: start: 20200901
  8. HYQVIA [Concomitant]
     Active Substance: HUMAN IMMUNOGLOBULIN G\HYALURONIDASE RECOMBINANT HUMAN
  9. BELANTAMAB MAFODOTIN. [Suspect]
     Active Substance: BELANTAMAB MAFODOTIN
     Dosage: 122 MG (3 WEEKS)
     Route: 042
     Dates: start: 20200922
  10. SIMVASTATIN. [Concomitant]
     Active Substance: SIMVASTATIN
     Indication: BLOOD CHOLESTEROL
     Dosage: 40 MG, 1 TABLET
     Dates: start: 20120620
  11. ACYCLOVIR. [Concomitant]
     Active Substance: ACYCLOVIR
     Dosage: 200 MG, 1 TABLET
     Dates: start: 20190605
  12. PARACETAMOL [Concomitant]
     Active Substance: ACETAMINOPHEN
     Indication: PAIN
     Dosage: 500 MG, 2 TABLET
     Dates: start: 20190615
  13. ESTRADIOL. [Concomitant]
     Active Substance: ESTRADIOL
     Dosage: 10 UG
     Dates: start: 20181212
  14. LEVOTHYROXIN [Concomitant]
     Active Substance: LEVOTHYROXINE
     Dosage: 50 UG
     Dates: start: 20150130
  15. PANTOPRAZOL [Concomitant]
     Active Substance: PANTOPRAZOLE SODIUM
     Dosage: 40 MG, 1 TABLET
     Dates: start: 20160314
  16. FILGRASTIM [Concomitant]
     Active Substance: FILGRASTIM
     Dosage: 30 ML
     Dates: start: 20191205
  17. ZOPICLON [Concomitant]
     Active Substance: ZOPICLONE
     Indication: AFRICAN TRYPANOSOMIASIS
     Dosage: 7.5 MG, 1 TABLET
     Dates: start: 20190819
  18. NORTRIPTYLINE [Concomitant]
     Active Substance: NORTRIPTYLINE
     Indication: NEURALGIA
     Dosage: 25 MG, 1 TABLET 2? 3 TIMES DAILY
     Dates: start: 20120903

REACTIONS (3)
  - Maculopathy [Not Recovered/Not Resolved]
  - Femur fracture [Not Recovered/Not Resolved]
  - Punctate keratitis [Not Recovered/Not Resolved]

NARRATIVE: CASE EVENT DATE: 20200906
